FAERS Safety Report 19007527 (Version 2)
Quarter: 2021Q3

REPORT INFORMATION
  Report Type: Report from Study
  Country: GB (occurrence: GB)
  Receive Date: 20210315
  Receipt Date: 20210819
  Transmission Date: 20211014
  Serious: Yes (Other)
  Sender: FDA-Public Use
  Company Number: NVSC2021GB057379

PATIENT
  Sex: Male

DRUGS (1)
  1. OMNITROPE [Suspect]
     Active Substance: SOMATROPIN
     Indication: GROWTH HORMONE DEFICIENCY
     Dosage: 0.2 MG, QD (SUREPAL PEN 5)
     Route: 065
     Dates: start: 20191222

REACTIONS (3)
  - Depression [Unknown]
  - Malaise [Unknown]
  - Product dose omission issue [Unknown]
